FAERS Safety Report 9910787 (Version 1)
Quarter: 2014Q1

REPORT INFORMATION
  Report Type: Spontaneous
  Country: US (occurrence: US)
  Receive Date: 20140219
  Receipt Date: 20140219
  Transmission Date: 20141002
  Serious: Yes (Other)
  Sender: FDA-Public Use
  Company Number: US-ROXANE LABORATORIES, INC.-2014-RO-00227RO

PATIENT
  Age: 47 Year
  Sex: Male

DRUGS (2)
  1. PREDNISONE [Suspect]
     Indication: IMMUNE THROMBOCYTOPENIC PURPURA
  2. ANTIRETROVIRAL THERAPY [Concomitant]
     Indication: ACQUIRED IMMUNODEFICIENCY SYNDROME

REACTIONS (1)
  - Osteonecrosis [Unknown]
